FAERS Safety Report 7655191-6 (Version None)
Quarter: 2011Q3

REPORT INFORMATION
  Report Type: 
  Country: None (occurrence: None)
  Receive Date: 20110729
  Receipt Date: 20110720
  Transmission Date: 20111222
  Serious: Yes (Death, Hospitalization, Other)
  Sender: FDA-Public Use
  Company Number: 2011MA009224

PATIENT
  Age: 66 Year
  Sex: Male

DRUGS (15)
  1. LASIX [Concomitant]
  2. COREG [Concomitant]
  3. MONTELUKAST SODIUM [Concomitant]
  4. METOCLOPRAMIDE [Concomitant]
  5. DIGOXIN [Suspect]
     Indication: CARDIAC FAILURE CONGESTIVE
     Dosage: 0.125 MG;QD;O
     Route: 048
     Dates: start: 20031020, end: 20070619
  6. ASPIRIN [Concomitant]
  7. CAL-D-VITA [Concomitant]
  8. POTASSIUM CHLORIDE [Concomitant]
  9. CYTOXAN [Concomitant]
  10. TRICOR [Concomitant]
  11. PANTOPRAZOLE [Concomitant]
  12. KETEK [Concomitant]
  13. DIOVAN [Concomitant]
  14. ATIVAN [Concomitant]
  15. PREDNISONE [Concomitant]

REACTIONS (66)
  - ECONOMIC PROBLEM [None]
  - RECTAL TENESMUS [None]
  - LIVER FUNCTION TEST ABNORMAL [None]
  - RESPIRATORY FAILURE [None]
  - HALLUCINATION [None]
  - SINUSITIS [None]
  - GASTROENTERITIS [None]
  - HYPERTENSION [None]
  - BLOOD GLUCOSE INCREASED [None]
  - BLOOD ALBUMIN DECREASED [None]
  - PROTEIN TOTAL DECREASED [None]
  - AGRANULOCYTOSIS [None]
  - CARDIAC FAILURE CONGESTIVE [None]
  - FATIGUE [None]
  - DIZZINESS [None]
  - SOMNOLENCE [None]
  - DIARRHOEA [None]
  - ANAEMIA [None]
  - CARBON DIOXIDE INCREASED [None]
  - CARDIOMEGALY [None]
  - OEDEMA PERIPHERAL [None]
  - PRODUCTIVE COUGH [None]
  - CARDIAC MURMUR [None]
  - CONFUSIONAL STATE [None]
  - VOMITING [None]
  - MYOCARDIAL INFARCTION [None]
  - MENTAL DISORDER [None]
  - ARTERIOSCLEROSIS CORONARY ARTERY [None]
  - CLOSTRIDIAL INFECTION [None]
  - UPPER-AIRWAY COUGH SYNDROME [None]
  - NEUTROPENIA [None]
  - STOMATITIS [None]
  - RENAL FAILURE CHRONIC [None]
  - AORTIC VALVE INCOMPETENCE [None]
  - HYPOKALAEMIA [None]
  - TRICUSPID VALVE INCOMPETENCE [None]
  - ASCITES [None]
  - INCREASED TENDENCY TO BRUISE [None]
  - CARDIOMYOPATHY [None]
  - NAUSEA [None]
  - COLITIS [None]
  - CHOLELITHIASIS [None]
  - TYPE V HYPERLIPIDAEMIA [None]
  - EPISTAXIS [None]
  - ISCHAEMIC CARDIOMYOPATHY [None]
  - PLEURAL EFFUSION [None]
  - KIDNEY FIBROSIS [None]
  - CARDIAC DISORDER [None]
  - ABNORMAL BEHAVIOUR [None]
  - ANHEDONIA [None]
  - PAIN [None]
  - ABDOMINAL DISCOMFORT [None]
  - SINUS TACHYCARDIA [None]
  - AORTIC STENOSIS [None]
  - DYSPNOEA EXERTIONAL [None]
  - MALAISE [None]
  - WEIGHT DECREASED [None]
  - BLOOD CHLORIDE DECREASED [None]
  - CHOLECYSTITIS [None]
  - HEPATIC CONGESTION [None]
  - TOXICITY TO VARIOUS AGENTS [None]
  - INJURY [None]
  - DECREASED APPETITE [None]
  - ABDOMINAL DISTENSION [None]
  - ENTERITIS [None]
  - RENAL FUNCTION TEST ABNORMAL [None]
